FAERS Safety Report 24631854 (Version 2)
Quarter: 2024Q4

REPORT INFORMATION
  Report Type: Report from Study
  Country: BE (occurrence: BE)
  Receive Date: 20241118
  Receipt Date: 20241205
  Transmission Date: 20250114
  Serious: Yes (Hospitalization)
  Sender: ABBVIE
  Company Number: BE-ABBVIE-6000532

PATIENT
  Sex: Male

DRUGS (2)
  1. FOSCARBIDOPA\FOSLEVODOPA [Suspect]
     Active Substance: FOSCARBIDOPA\FOSLEVODOPA
     Indication: Parkinson^s disease
     Dosage: LD: 1.20ML, BI RATE:0.84ML/H, HI RATE: 0.84ML/H, LI RATE: 0.80ML/H, ED: 0.30ML, DURING 24 HOURS
     Route: 058
     Dates: start: 20241010
  2. FOSCARBIDOPA\FOSLEVODOPA [Suspect]
     Active Substance: FOSCARBIDOPA\FOSLEVODOPA
     Route: 058
     Dates: start: 20241007, end: 20241010

REACTIONS (4)
  - General physical health deterioration [Unknown]
  - Abscess [Not Recovered/Not Resolved]
  - Hallucination [Unknown]
  - Epilepsy [Unknown]

NARRATIVE: CASE EVENT DATE: 20240101
